FAERS Safety Report 8459694-6 (Version None)
Quarter: 2012Q2

REPORT INFORMATION
  Report Type: 
  Country: None (occurrence: None)
  Receive Date: 20120622
  Receipt Date: 20120614
  Transmission Date: 20120825
  Serious: Yes (Other)
  Sender: FDA-Public Use
  Company Number: UG-B.I. PHARMACEUTICALS,INC./RIDGEFIELD-2012-EU-03165GD

PATIENT
  Sex: Male

DRUGS (3)
  1. LAMIVUDINE [Suspect]
     Indication: HIV INFECTION
     Dates: start: 20090901
  2. NEVIRAPINE [Suspect]
     Indication: HIV INFECTION
     Dates: start: 20090901
  3. TENOFOVIR DISOPROXIL FUMARATE [Suspect]
     Indication: HIV INFECTION
     Dates: start: 20090901

REACTIONS (7)
  - PYREXIA [None]
  - NIGHT SWEATS [None]
  - METASTASES TO MUSCLE [None]
  - DIFFUSE LARGE B-CELL LYMPHOMA [None]
  - DECREASED APPETITE [None]
  - METASTASES TO SOFT TISSUE [None]
  - WEIGHT DECREASED [None]
